FAERS Safety Report 8340573-X (Version None)
Quarter: 2012Q2

REPORT INFORMATION
  Report Type: 
  Country: None (occurrence: None)
  Receive Date: 20120507
  Receipt Date: 20120430
  Transmission Date: 20120825
  Serious: Yes (Other)
  Sender: FDA-Public Use
  Company Number: FR-UCBSA-048374

PATIENT
  Age: 8 Year
  Sex: Male
  Weight: 42 kg

DRUGS (1)
  1. XYZAL [Suspect]
     Indication: PRURITUS
     Dosage: DAILY DOSE: 5 MG
     Dates: start: 20111123, end: 20111212

REACTIONS (3)
  - NIGHTMARE [None]
  - ABNORMAL BEHAVIOUR [None]
  - HALLUCINATIONS, MIXED [None]
